FAERS Safety Report 9841761 (Version 1)
Quarter: 2013Q4

REPORT INFORMATION
  Report Type: Spontaneous
  Country: US (occurrence: None)
  Receive Date: 20131219
  Receipt Date: 20131219
  Transmission Date: 20140711
  Serious: Yes (Death)
  Sender: FDA-Public Use
  Company Number: 163-20785-12111201

PATIENT
  Age: 78 Year
  Sex: Male

DRUGS (9)
  1. THALOMID [Suspect]
     Indication: MYELOFIBROSIS
     Dosage: 28 IN 28 D
     Route: 048
     Dates: start: 20121009, end: 2012
  2. SIMVASTATIN [Concomitant]
  3. PROCRIT [Concomitant]
  4. OMEPRAZOLE [Concomitant]
  5. NITROGLYCERIN ER [Concomitant]
  6. METOPROLOL [Concomitant]
  7. LISINOPRIL [Concomitant]
  8. FUROSEMIDE [Concomitant]
  9. METOPROLOL [Concomitant]

REACTIONS (1)
  - Death [None]
